FAERS Safety Report 12486586 (Version 4)
Quarter: 2017Q1

REPORT INFORMATION
  Report Type: Report from Study
  Country: None (occurrence: RO)
  Receive Date: 20160621
  Receipt Date: 20170331
  Transmission Date: 20170428
  Serious: Yes (Hospitalization, Other)
  Sender: FDA-Public Use
  Company Number: RO-ABBVIE-16P-135-1655129-00

PATIENT
  Age: 63 Year
  Sex: Male

DRUGS (2)
  1. NEUPRO [Concomitant]
     Active Substance: ROTIGOTINE
     Indication: PRODUCT USED FOR UNKNOWN INDICATION
     Dosage: 1-0-0
  2. DUODOPA [Suspect]
     Active Substance: CARBIDOPA\LEVODOPA
     Indication: PARKINSON^S DISEASE
     Dosage: 16/24: MD -10 ML, CR-4,7 ML, DE-2,2 ML
     Route: 050
     Dates: start: 20160127

REACTIONS (15)
  - Major depression [Not Recovered/Not Resolved]
  - Respiratory tract infection viral [Recovered/Resolved]
  - Vomiting [Unknown]
  - Dementia [Not Recovered/Not Resolved]
  - Dysphagia [Recovered/Resolved]
  - Pyrexia [Recovered/Resolved]
  - Abdominal distension [Recovered/Resolved]
  - Escherichia urinary tract infection [Recovered/Resolved]
  - Generalised anxiety disorder [Not Recovered/Not Resolved]
  - Treatment noncompliance [Not Recovered/Not Resolved]
  - Respiratory failure [Recovered/Resolved]
  - Generalised anxiety disorder [Recovered/Resolved]
  - Flatulence [Recovered/Resolved]
  - Stoma site infection [Recovered/Resolved]
  - Candida infection [Recovered/Resolved]

NARRATIVE: CASE EVENT DATE: 20160614
